FAERS Safety Report 20298020 (Version 2)
Quarter: 2022Q3

REPORT INFORMATION
  Report Type: Spontaneous
  Country: GB (occurrence: GB)
  Receive Date: 20220105
  Receipt Date: 20220713
  Transmission Date: 20221026
  Serious: Yes (Other)
  Sender: FDA-Public Use
  Company Number: GB-GSKCCFEMEA-Case-01387568_AE-53368

PATIENT

DRUGS (1)
  1. DUAC [Suspect]
     Active Substance: BENZOYL PEROXIDE\CLINDAMYCIN PHOSPHATE
     Indication: Product used for unknown indication
     Dosage: 10 MG/G + 50 MG/G ONCE DAILY

REACTIONS (1)
  - Crohn^s disease [Unknown]
